FAERS Safety Report 5989246-9 (Version None)
Quarter: 2008Q4

REPORT INFORMATION
  Report Type: 
  Country: None (occurrence: None)
  Receive Date: 20081205
  Receipt Date: 20081124
  Transmission Date: 20090506
  Serious: Yes (Hospitalization)
  Sender: FDA-Public Use
  Company Number: 6044453

PATIENT
  Age: 46 Year
  Sex: Male

DRUGS (4)
  1. NOVOTHYRAL(100 MICROGRAM, TABLET)(LEVOTHYROXINE SODIUM, LIOTHYRONINE S [Suspect]
     Indication: BASEDOW'S DISEASE
     Dosage: 100 MCG (100 MCG, 1 IN 1 D) ORAL; 75 MCG (75 MCG,1 IN 1 D)  ORAL
     Route: 048
     Dates: start: 20070901, end: 20080501
  2. NOVOTHYRAL(100 MICROGRAM, TABLET)(LEVOTHYROXINE SODIUM, LIOTHYRONINE S [Suspect]
     Indication: BASEDOW'S DISEASE
     Dosage: 100 MCG (100 MCG, 1 IN 1 D) ORAL; 75 MCG (75 MCG,1 IN 1 D)  ORAL
     Route: 048
     Dates: start: 20080601, end: 20080701
  3. NOVOTHYRAL(100 MICROGRAM, TABLET)(LEVOTHYROXINE SODIUM, LIOTHYRONINE S [Suspect]
     Indication: BASEDOW'S DISEASE
     Dosage: 100 MCG (100 MCG, 1 IN 1 D) ORAL; 75 MCG (75 MCG,1 IN 1 D)  ORAL
     Route: 048
     Dates: start: 20080701, end: 20080901
  4. L-THYROXIN(150 MICROGRAM) (LEVOTHYROXINE) [Concomitant]

REACTIONS (3)
  - GENERAL PHYSICAL CONDITION ABNORMAL [None]
  - PRODUCT QUALITY ISSUE [None]
  - SHOCK [None]
